FAERS Safety Report 4758919-8 (Version None)
Quarter: 2005Q3

REPORT INFORMATION
  Report Type: 
  Country: None (occurrence: None)
  Receive Date: 20050901
  Receipt Date: 20050825
  Transmission Date: 20060218
  Serious: Yes (Hospitalization)
  Sender: FDA-Public Use
  Company Number: 200517542GDDC

PATIENT
  Age: 64 Year
  Sex: 0

DRUGS (3)
  1. TAXOTERE [Suspect]
     Indication: OESOPHAGEAL CARCINOMA
     Dosage: DOSE: UNK
  2. CISPLATIN [Suspect]
     Indication: OESOPHAGEAL CARCINOMA
     Dosage: DOSE: UNK
  3. FLUOROURACIL [Suspect]
     Indication: OESOPHAGEAL CARCINOMA
     Dosage: DOSE: UNK

REACTIONS (9)
  - DIARRHOEA [None]
  - DIZZINESS [None]
  - HAEMATOCRIT DECREASED [None]
  - HAEMOGLOBIN DECREASED [None]
  - LIP ULCERATION [None]
  - MOUTH ULCERATION [None]
  - NAUSEA [None]
  - STOMATITIS [None]
  - VOMITING [None]
